FAERS Safety Report 18458533 (Version 2)
Quarter: 2020Q4

REPORT INFORMATION
  Report Type: Report from Study
  Country: CA (occurrence: CA)
  Receive Date: 20201103
  Receipt Date: 20201126
  Transmission Date: 20210114
  Serious: Yes (Other)
  Sender: FDA-Public Use
  Company Number: CA-SHIRE-CA202024856

PATIENT
  Age: 61 Year
  Sex: Male
  Weight: 68 kg

DRUGS (19)
  1. MARIJUANA [Concomitant]
     Active Substance: CANNABIS SATIVA SUBSP. INDICA TOP
     Indication: PRODUCT USED FOR UNKNOWN INDICATION
  2. TEDUGLUTIDE [Suspect]
     Active Substance: TEDUGLUTIDE
     Indication: SHORT-BOWEL SYNDROME
     Dosage: 2 MILLIGRAM, 1X/DAY:QD
     Route: 058
     Dates: start: 20170710
  3. TEDUGLUTIDE [Suspect]
     Active Substance: TEDUGLUTIDE
     Dosage: 2 MILLIGRAM, 1X/DAY:QD
     Route: 058
     Dates: start: 20170710
  4. CESAMET [Concomitant]
     Active Substance: NABILONE
     Indication: PRODUCT USED FOR UNKNOWN INDICATION
  5. TYLENOL [Concomitant]
     Active Substance: ACETAMINOPHEN
     Indication: PRODUCT USED FOR UNKNOWN INDICATION
  6. TEDUGLUTIDE [Suspect]
     Active Substance: TEDUGLUTIDE
     Dosage: 2 MILLIGRAM, 1X/DAY:QD
     Route: 058
     Dates: start: 20170710
  7. TPN [NICOTINAMIDE;PYRIDOXINE HYDROCHLORIDE;TYROSINE] [Concomitant]
     Active Substance: NIACINAMIDE\PYRIDOXINE HYDROCHLORIDE\TYROSINE
     Indication: PRODUCT USED FOR UNKNOWN INDICATION
  8. CODEINE [Concomitant]
     Active Substance: CODEINE
     Indication: PRODUCT USED FOR UNKNOWN INDICATION
  9. HYDROMORPHONE [Concomitant]
     Active Substance: HYDROMORPHONE
     Indication: PRODUCT USED FOR UNKNOWN INDICATION
  10. TEDUGLUTIDE [Suspect]
     Active Substance: TEDUGLUTIDE
     Indication: SHORT-BOWEL SYNDROME
     Dosage: 2 MILLIGRAM, 1X/DAY:QD
     Route: 058
     Dates: start: 20170710
  11. TEDUGLUTIDE [Suspect]
     Active Substance: TEDUGLUTIDE
     Dosage: 2 MILLIGRAM, 1X/DAY:QD
     Route: 058
     Dates: start: 20170710
  12. CELEBREX [Concomitant]
     Active Substance: CELECOXIB
     Indication: PRODUCT USED FOR UNKNOWN INDICATION
  13. VITAMINS NOS [Concomitant]
     Active Substance: VITAMINS
     Indication: PRODUCT USED FOR UNKNOWN INDICATION
  14. TEDUGLUTIDE [Suspect]
     Active Substance: TEDUGLUTIDE
     Indication: SHORT-BOWEL SYNDROME
     Dosage: 2 MILLIGRAM, 1X/DAY:QD
     Route: 058
     Dates: start: 20170710
  15. TEDUGLUTIDE [Suspect]
     Active Substance: TEDUGLUTIDE
     Dosage: 2 MILLIGRAM, 1X/DAY:QD
     Route: 058
     Dates: start: 20170710
  16. LOMOTIL [LOPERAMIDE HYDROCHLORIDE] [Concomitant]
     Active Substance: LOPERAMIDE HYDROCHLORIDE
     Indication: PRODUCT USED FOR UNKNOWN INDICATION
  17. RELISTOR [Concomitant]
     Active Substance: METHYLNALTREXONE BROMIDE
     Indication: PRODUCT USED FOR UNKNOWN INDICATION
  18. TEDUGLUTIDE [Suspect]
     Active Substance: TEDUGLUTIDE
     Indication: SHORT-BOWEL SYNDROME
     Dosage: 2 MILLIGRAM, 1X/DAY:QD
     Route: 058
     Dates: start: 20170710
  19. ZINC. [Concomitant]
     Active Substance: ZINC
     Indication: PRODUCT USED FOR UNKNOWN INDICATION

REACTIONS (18)
  - Faecal volume increased [Unknown]
  - Flatulence [Not Recovered/Not Resolved]
  - Pain [Not Recovered/Not Resolved]
  - Gastrointestinal bacterial overgrowth [Unknown]
  - Clavicle fracture [Recovering/Resolving]
  - Weight decreased [Unknown]
  - Large intestinal obstruction [Not Recovered/Not Resolved]
  - Abnormal faeces [Not Recovered/Not Resolved]
  - Abdominal pain upper [Unknown]
  - Neoplasm malignant [Not Recovered/Not Resolved]
  - Inflammatory bowel disease [Unknown]
  - Fall [Recovering/Resolving]
  - Urine output decreased [Unknown]
  - Decreased appetite [Not Recovered/Not Resolved]
  - Small intestinal obstruction [Unknown]
  - Gastrointestinal pain [Not Recovered/Not Resolved]
  - Abdominal discomfort [Not Recovered/Not Resolved]
  - Diarrhoea [Unknown]

NARRATIVE: CASE EVENT DATE: 2020
